FAERS Safety Report 7179361-9 (Version None)
Quarter: 2010Q4

REPORT INFORMATION
  Report Type: 
  Country: None (occurrence: None)
  Receive Date: 20101221
  Receipt Date: 20101215
  Transmission Date: 20110411
  Serious: Yes (Life-Threatening, Hospitalization)
  Sender: FDA-Public Use
  Company Number: PHBS2004JP02667

PATIENT
  Sex: Male
  Weight: 52 kg

DRUGS (12)
  1. SIMULECT [Suspect]
     Indication: RENAL TRANSPLANT
     Dosage: 20 MG
     Dates: start: 20030305
  2. SIMULECT [Suspect]
     Dosage: 20 MG
     Route: 042
     Dates: start: 20030312, end: 20030312
  3. NEORAL [Suspect]
     Indication: RENAL TRANSPLANT
     Dosage: UNK
     Route: 048
     Dates: start: 20030309, end: 20030320
  4. PROGRAF [Suspect]
     Indication: RENAL TRANSPLANT
     Dosage: UNK
     Route: 048
     Dates: start: 20030303, end: 20030304
  5. PROGRAF [Suspect]
     Dosage: UNK
     Route: 048
     Dates: start: 20030306
  6. PROGRAF [Suspect]
     Dosage: UNK
     Route: 042
     Dates: start: 20030305, end: 20030308
  7. PROGRAF [Suspect]
     Dosage: UNK
     Route: 042
     Dates: start: 20030322
  8. CELLCEPT [Suspect]
     Indication: RENAL TRANSPLANT
     Dosage: UNK
     Dates: start: 20030305
  9. CELLCEPT [Suspect]
     Dosage: UNK
     Route: 042
     Dates: start: 20030223, end: 20030307
  10. METHYLPREDNISOLONE [Suspect]
     Indication: RENAL TRANSPLANT
     Dosage: UNK
     Route: 048
     Dates: start: 20030423
  11. STEROIDS NOS [Suspect]
     Indication: RENAL TRANSPLANT
     Dosage: UNK
     Dates: start: 20030305
  12. ANTIHYPERTENSIVES [Concomitant]
     Dosage: UNK

REACTIONS (23)
  - ABDOMINAL PAIN [None]
  - ALANINE AMINOTRANSFERASE INCREASED [None]
  - ANGIOGRAM [None]
  - ARTERIAL CATHETERISATION [None]
  - ASCITES [None]
  - ASPARTATE AMINOTRANSFERASE INCREASED [None]
  - BLOOD AMYLASE INCREASED [None]
  - BLOOD LACTATE DEHYDROGENASE INCREASED [None]
  - BLOOD PRESSURE SYSTOLIC DECREASED [None]
  - COLOSTOMY [None]
  - CYTOMEGALOVIRUS INFECTION [None]
  - GASTROINTESTINAL NECROSIS [None]
  - GASTROINTESTINAL STOMA COMPLICATION [None]
  - INTESTINAL ANASTOMOSIS [None]
  - INTESTINAL ISCHAEMIA [None]
  - INTESTINAL RESECTION [None]
  - JEJUNOSTOMY [None]
  - LAPAROTOMY [None]
  - METABOLIC ACIDOSIS [None]
  - NECROTISING COLITIS [None]
  - PORTAL VENOUS GAS [None]
  - PYREXIA [None]
  - WHITE BLOOD CELL COUNT INCREASED [None]
